FAERS Safety Report 9610638 (Version 1)
Quarter: 2013Q4

REPORT INFORMATION
  Report Type: Report from Study
  Country: CA (occurrence: CA)
  Receive Date: 20131009
  Receipt Date: 20131009
  Transmission Date: 20140711
  Serious: Yes (Other)
  Sender: FDA-Public Use
  Company Number: PHHY2013CA112772

PATIENT
  Sex: Female

DRUGS (2)
  1. DIOVAN [Suspect]
  2. TEKTURNA [Concomitant]

REACTIONS (4)
  - Thyroid disorder [Unknown]
  - Nodule [Unknown]
  - Pain [Unknown]
  - Blood pressure increased [Unknown]
